FAERS Safety Report 25915861 (Version 1)
Quarter: 2025Q4

REPORT INFORMATION
  Report Type: Spontaneous
  Country: US (occurrence: US)
  Receive Date: 20251013
  Receipt Date: 20251013
  Transmission Date: 20260117
  Serious: No
  Sender: BIOMARIN
  Company Number: US-BIOMARINAP-US-2025-169257

PATIENT
  Age: 15 Year
  Sex: Female

DRUGS (1)
  1. PALYNZIQ [Suspect]
     Active Substance: PEGVALIASE-PQPZ
     Indication: Phenylketonuria

REACTIONS (2)
  - Swelling [Recovered/Resolved]
  - Arthralgia [Recovered/Resolved]
